FAERS Safety Report 13691081 (Version 1)
Quarter: 2017Q2

REPORT INFORMATION
  Report Type: Spontaneous
  Country: US (occurrence: US)
  Receive Date: 20170626
  Receipt Date: 20170626
  Transmission Date: 20170830
  Serious: Yes (Other)
  Sender: FDA-Public Use
  Company Number: US-PFIZER INC-2017271023

PATIENT
  Sex: Female

DRUGS (1)
  1. XELJANZ XR [Suspect]
     Active Substance: TOFACITINIB CITRATE
     Dosage: 11 MG, DAILY
     Dates: start: 201705

REACTIONS (4)
  - Lasegue^s test positive [Unknown]
  - Arthralgia [Unknown]
  - Joint crepitation [Unknown]
  - Thrombotic thrombocytopenic purpura [Unknown]
